FAERS Safety Report 17436975 (Version 1)
Quarter: 2020Q1

REPORT INFORMATION
  Report Type: Spontaneous
  Country: PL (occurrence: PL)
  Receive Date: 20200219
  Receipt Date: 20200219
  Transmission Date: 20200409
  Serious: Yes (Hospitalization, Other)
  Sender: FDA-Public Use
  Company Number: PL-ASTRAZENECA-2020SE23464

PATIENT
  Age: 70 Year
  Sex: Male

DRUGS (1)
  1. FORXIGA [Suspect]
     Active Substance: DAPAGLIFLOZIN
     Dosage: UNKNOWN
     Route: 048

REACTIONS (4)
  - Ureterolithiasis [Recovered/Resolved]
  - Renal impairment [Unknown]
  - Off label use [Unknown]
  - Glomerular filtration rate decreased [Unknown]
